FAERS Safety Report 26219230 (Version 1)
Quarter: 2025Q4

REPORT INFORMATION
  Report Type: Spontaneous
  Country: EU (occurrence: EU)
  Receive Date: 20251231
  Receipt Date: 20251231
  Transmission Date: 20260118
  Serious: Yes (Hospitalization)
  Sender: PFIZER
  Company Number: EU-GLAXOSMITHKLINE-FR2020GSK206500

PATIENT
  Age: 66 Year
  Sex: Female
  Weight: 57 kg

DRUGS (6)
  1. CARBOPLATIN [Suspect]
     Active Substance: CARBOPLATIN
     Indication: Ovarian cancer
     Dosage: 6 AUC,U, SOLUTION FOR INFUSION
     Route: 042
     Dates: start: 20200609
  2. CARBOPLATIN [Suspect]
     Active Substance: CARBOPLATIN
     Dosage: 6 AUC, U, SOLUTION FOR INFUSION
     Route: 042
     Dates: start: 20200925
  3. PACLITAXEL [Suspect]
     Active Substance: PACLITAXEL
     Indication: Ovarian cancer
     Dosage: 264 MG, SOLUTION FOR INFUSION
     Route: 042
     Dates: start: 20200609
  4. PACLITAXEL [Suspect]
     Active Substance: PACLITAXEL
     Dosage: 256 MG, SOLUTION FOR INFUSION
     Route: 042
     Dates: start: 20200925
  5. BEVACIZUMAB [Suspect]
     Active Substance: BEVACIZUMAB
     Indication: Ovarian cancer
     Dosage: 15 MG/KG, U
     Route: 042
     Dates: start: 20200925, end: 20200925
  6. DOSTARLIMAB [Suspect]
     Active Substance: DOSTARLIMAB
     Indication: Ovarian cancer
     Dosage: 500 MG
     Route: 042
     Dates: start: 20200703, end: 20200703

REACTIONS (2)
  - Sepsis [Recovered/Resolved]
  - Septic shock [Recovered/Resolved]

NARRATIVE: CASE EVENT DATE: 20201014
